FAERS Safety Report 16713477 (Version 2)
Quarter: 2019Q4

REPORT INFORMATION
  Report Type: Spontaneous
  Country: JP (occurrence: JP)
  Receive Date: 20190819
  Receipt Date: 20191105
  Transmission Date: 20200122
  Serious: Yes (Hospitalization, Disabling, Other)
  Sender: FDA-Public Use
  Company Number: JP-AMGEN-JPNSP2019026880

PATIENT
  Age: 48 Year
  Sex: Female
  Weight: 64 kg

DRUGS (8)
  1. TRAMCET [Concomitant]
     Active Substance: ACETAMINOPHEN\TRAMADOL
     Indication: METASTASES TO BONE
     Dosage: 4 DOSAGE FORM, QID
     Route: 048
     Dates: start: 20171002, end: 20180417
  2. FASLODEX [Concomitant]
     Active Substance: FULVESTRANT
     Indication: BREAST CANCER
     Dosage: 500 MG
     Route: 030
     Dates: start: 20180413
  3. IBRANCE [Concomitant]
     Active Substance: PALBOCICLIB
     Indication: BREAST CANCER
     Dosage: 125 MILLIGRAM, QD
     Route: 048
     Dates: start: 20180331, end: 20180406
  4. LEUPLIN [Concomitant]
     Active Substance: LEUPROLIDE ACETATE
     Indication: BREAST CANCER
     Dosage: UNK, TID
     Route: 065
     Dates: start: 20171006, end: 20180330
  5. LYRICA [Concomitant]
     Active Substance: PREGABALIN
     Indication: METASTASES TO BONE
     Dosage: 450 MILLIGRAM, BID
     Route: 048
     Dates: start: 20171002
  6. RANMARK [Suspect]
     Active Substance: DENOSUMAB
     Indication: METASTASES TO BONE
     Dosage: 120 MILLIGRAM, 18 TIMES
     Route: 058
     Dates: start: 20171006, end: 20190205
  7. DENOTAS [Suspect]
     Active Substance: CALCIUM CARBONATE\CHOLECALCIFEROL\MAGNESIUM CARBONATE
     Indication: PRODUCT USED FOR UNKNOWN INDICATION
     Dosage: UNK
     Route: 065
  8. NOLVADEX [Concomitant]
     Active Substance: TAMOXIFEN CITRATE
     Indication: BREAST CANCER
     Dosage: 20 MILLIGRAM, QD
     Route: 048
     Dates: start: 20171003, end: 20180330

REACTIONS (3)
  - Parotitis [Not Recovered/Not Resolved]
  - Osteonecrosis of jaw [Recovering/Resolving]
  - Osteomyelitis [Not Recovered/Not Resolved]

NARRATIVE: CASE EVENT DATE: 20190213
